FAERS Safety Report 19644205 (Version 1)
Quarter: 2021Q3

REPORT INFORMATION
  Report Type: Spontaneous
  Country: GB (occurrence: GB)
  Receive Date: 20210801
  Receipt Date: 20210801
  Transmission Date: 20211014
  Serious: Yes (Other)
  Sender: FDA-Public Use
  Company Number: GB-ORGANON-O2107GBR002324

PATIENT
  Age: 50 Year
  Sex: Female
  Weight: 57 kg

DRUGS (18)
  1. MIRTAZAPINE. [Suspect]
     Active Substance: MIRTAZAPINE
     Dosage: 15 MILLIGRAM
     Dates: start: 20210726
  2. AMOXICILLIN. [Concomitant]
     Active Substance: AMOXICILLIN
     Dosage: 1 DOSAGE FORM, TID
     Dates: start: 20210611, end: 20210616
  3. COSMOCOL [Concomitant]
     Dosage: AS DIRECTED
     Dates: start: 20200903
  4. FLUDROCORTISONE [Concomitant]
     Active Substance: FLUDROCORTISONE
     Dosage: 200 MICROGRAM
     Dates: start: 20210329
  5. FLUOXETINE [Concomitant]
     Active Substance: FLUOXETINE HYDROCHLORIDE
     Dosage: EACH NIGHT
     Dates: start: 20210216, end: 20210607
  6. LANSOPRAZOLE. [Concomitant]
     Active Substance: LANSOPRAZOLE
     Dosage: 1 DOSAGE FORM, QD
     Dates: start: 20200903
  7. PREDNISOLONE. [Concomitant]
     Active Substance: PREDNISOLONE
     Dosage: FOR 5 DAYS
     Dates: start: 20210611, end: 20210616
  8. FOSTAIR [Concomitant]
     Active Substance: BECLOMETHASONE\FORMOTEROL
     Dosage: 1?2 PUFFS TWICE A DAY
     Dates: start: 20210611, end: 20210711
  9. MONTELUKAST SODIUM. [Concomitant]
     Active Substance: MONTELUKAST SODIUM
     Dosage: AT NIGHT
     Dates: start: 20210611
  10. BETAHISTINE [Concomitant]
     Active Substance: BETAHISTINE
     Dosage: TAKE ONE?TWO 3 TIMES/DAY
     Dates: start: 20210609, end: 20210707
  11. LORAZEPAM. [Concomitant]
     Active Substance: LORAZEPAM
     Indication: ILL-DEFINED DISORDER
     Dosage: 1 MILLIGRAM, TID
     Dates: start: 20210607, end: 20210705
  12. SALBUTAMOL [Concomitant]
     Active Substance: ALBUTEROL
     Dosage: 1 DOSAGE FORM, 2 AS NECESSARY
     Route: 055
     Dates: start: 20200903
  13. SODIUM PICOSULFATE [Concomitant]
     Active Substance: SODIUM PICOSULFATE
     Dosage: 10 MILLILITER, BID
     Dates: start: 20200903
  14. COCODAMOL [Concomitant]
     Active Substance: ACETAMINOPHEN\CODEINE PHOSPHATE
     Dosage: 1?2 TO BE TAKEN FOUR TIMES DAILY PRN
     Dates: start: 20210609, end: 20210707
  15. FENBID [IBUPROFEN] [Concomitant]
     Dosage: 1 DOSAGE FORM, TID
     Dates: start: 20210607, end: 20210707
  16. NITROFURANTOIN. [Concomitant]
     Active Substance: NITROFURANTOIN
     Dosage: 1 DOSAGE FORM, BID
     Dates: start: 20210618, end: 20210621
  17. QVAR [Concomitant]
     Active Substance: BECLOMETHASONE DIPROPIONATE
     Dosage: 1 DOSAGE FORM, BID
     Route: 055
     Dates: start: 20201015, end: 20210611
  18. BACLOFEN. [Concomitant]
     Active Substance: BACLOFEN
     Dosage: 1 DOSAGE FORM, TID
     Dates: start: 20200903

REACTIONS (2)
  - Abnormal weight gain [Unknown]
  - Hallucination [Recovered/Resolved]

NARRATIVE: CASE EVENT DATE: 20210726
